APPROVED DRUG PRODUCT: PERSERIS KIT
Active Ingredient: RISPERIDONE
Strength: 120MG
Dosage Form/Route: FOR SUSPENSION, EXTENDED RELEASE;SUBCUTANEOUS
Application: N210655 | Product #002
Applicant: INDIVIOR INC
Approved: Jul 27, 2018 | RLD: Yes | RS: Yes | Type: RX

PATENTS:
Patent 10058554 | Expires: Sep 26, 2026
Patent 10406160 | Expires: Jun 26, 2026
Patent 10376590 | Expires: Feb 13, 2028
Patent 11712475 | Expires: Feb 13, 2028
Patent 11110093 | Expires: Nov 5, 2026
Patent 11013809 | Expires: Feb 13, 2028
Patent 9186413 | Expires: Feb 13, 2028
Patent 9597402 | Expires: Sep 26, 2026
Patent 10010612 | Expires: Feb 13, 2028
Patent 9180197 | Expires: Feb 13, 2028